FAERS Safety Report 4779811-9 (Version None)
Quarter: 2005Q3

REPORT INFORMATION
  Report Type: 
  Country: None (occurrence: None)
  Receive Date: 20050927
  Receipt Date: 20050919
  Transmission Date: 20060218
  Serious: Yes (Hospitalization)
  Sender: FDA-Public Use
  Company Number: US-JNJFOC-20050800877

PATIENT
  Sex: Female
  Weight: 73.03 kg

DRUGS (20)
  1. DURAGESIC-100 [Suspect]
     Route: 062
  2. TOPAMAX [Suspect]
     Route: 048
  3. TOPAMAX [Suspect]
     Indication: NEUROPATHY
     Route: 048
  4. ZESTRIL [Concomitant]
  5. VICODIN [Concomitant]
  6. VICODIN [Concomitant]
     Indication: PAIN
  7. VERELAN [Concomitant]
     Indication: DRUG USE FOR UNKNOWN INDICATION
  8. PREMARIN [Concomitant]
     Indication: DRUG USE FOR UNKNOWN INDICATION
  9. EVISTA [Concomitant]
     Indication: DRUG USE FOR UNKNOWN INDICATION
  10. PROTONIX [Concomitant]
     Indication: DRUG USE FOR UNKNOWN INDICATION
  11. LEXAPRO [Concomitant]
     Indication: DRUG USE FOR UNKNOWN INDICATION
  12. ASPIRIN [Concomitant]
     Indication: DRUG USE FOR UNKNOWN INDICATION
  13. QUININE [Concomitant]
  14. LIDODERM [Concomitant]
     Indication: PAIN
     Dosage: AS NECESSARY
  15. SKELAXIN [Concomitant]
  16. NEURONTIN [Concomitant]
     Indication: NEUROPATHY
  17. CELEBREX [Concomitant]
     Indication: DRUG USE FOR UNKNOWN INDICATION
  18. PREVACID [Concomitant]
     Indication: DRUG USE FOR UNKNOWN INDICATION
  19. LORTAB [Concomitant]
  20. LORTAB [Concomitant]
     Indication: DRUG USE FOR UNKNOWN INDICATION
     Dosage: 5/500, 1-2 PER DAY, AS NECESSARY

REACTIONS (9)
  - APPLICATION SITE ERYTHEMA [None]
  - APPLICATION SITE IRRITATION [None]
  - APPLICATION SITE PRURITUS [None]
  - CYSTITIS [None]
  - DRUG HYPERSENSITIVITY [None]
  - INFLUENZA LIKE ILLNESS [None]
  - OFF LABEL USE [None]
  - THERAPY NON-RESPONDER [None]
  - TOE AMPUTATION [None]
